FAERS Safety Report 13363499 (Version 1)
Quarter: 2017Q1

REPORT INFORMATION
  Report Type: Spontaneous
  Country: SI (occurrence: SI)
  Receive Date: 20170323
  Receipt Date: 20170323
  Transmission Date: 20170429
  Serious: Yes (Other)
  Sender: FDA-Public Use
  Company Number: SI-JNJFOC-20170322350

PATIENT

DRUGS (1)
  1. XARELTO [Suspect]
     Active Substance: RIVAROXABAN
     Indication: PRODUCT USED FOR UNKNOWN INDICATION
     Route: 048

REACTIONS (19)
  - Myocardial infarction [Unknown]
  - Renal impairment [Unknown]
  - Gastrointestinal haemorrhage [Unknown]
  - Ischaemic stroke [Unknown]
  - Conjunctival haemorrhage [Unknown]
  - Dyspepsia [Unknown]
  - Central nervous system haemorrhage [Unknown]
  - Epistaxis [Unknown]
  - Haemorrhage [Unknown]
  - Genital haemorrhage [Unknown]
  - Rash [Unknown]
  - Haematuria [Unknown]
  - Hepatic function abnormal [Unknown]
  - Embolism [Unknown]
  - Haemoptysis [Unknown]
  - Malaise [Unknown]
  - Gingival bleeding [Unknown]
  - Haemorrhage subcutaneous [Unknown]
  - Haematochezia [Unknown]
